FAERS Safety Report 8890903 (Version 1)
Quarter: 2012Q4

REPORT INFORMATION
  Report Type: 
  Country: US (occurrence: US)
  Receive Date: 20121107
  Receipt Date: 20121107
  Transmission Date: 20130627
  Serious: Yes (Other)
  Sender: FDA-Public Use
  Company Number: PHEH2012US021713

PATIENT
  Sex: Female

DRUGS (4)
  1. EXFORGE [Suspect]
     Dosage: 1 DF (valsartan 160mg and amlodipine 05mg) per day
     Route: 048
  2. LIPITOR [Concomitant]
  3. ASPIRIN [Concomitant]
  4. SOTALOL [Concomitant]

REACTIONS (4)
  - Appendicitis [Unknown]
  - Abdominal pain [Unknown]
  - Dizziness [Unknown]
  - Asthenia [Unknown]
